FAERS Safety Report 12743988 (Version 3)
Quarter: 2016Q4

REPORT INFORMATION
  Report Type: Spontaneous
  Country: FI (occurrence: FI)
  Receive Date: 20160914
  Receipt Date: 20161014
  Transmission Date: 20170207
  Serious: Yes (Hospitalization)
  Sender: FDA-Public Use
  Company Number: FI-SA-2016SA147793

PATIENT
  Age: 65 Year
  Sex: Male

DRUGS (4)
  1. FLUDARA [Suspect]
     Active Substance: FLUDARABINE PHOSPHATE
     Indication: CHRONIC LYMPHOCYTIC LEUKAEMIA
     Dosage: FREQUENCY/ DAILY DOSE - 6 TABLETS PER DAY AS 5 DAYS? COURSES FOR 4 TIMES
     Route: 065
     Dates: start: 201604, end: 20160720
  2. MABTHERA [Concomitant]
     Active Substance: RITUXIMAB
     Route: 042
  3. VITAMIN B6 [Concomitant]
     Active Substance: PYRIDOXINE HYDROCHLORIDE
  4. FLUDARA [Suspect]
     Active Substance: FLUDARABINE PHOSPHATE
     Indication: CHRONIC LYMPHOCYTIC LEUKAEMIA
     Dosage: FREQUENCY/ DAILY DOSE - 6 TABLETS PER DAY AS 5 DAYS? COURSES FOR 4 TIMES
     Route: 065
     Dates: start: 201604, end: 20160720

REACTIONS (6)
  - Abasia [Not Recovered/Not Resolved]
  - Dysarthria [Not Recovered/Not Resolved]
  - Movement disorder [Not Recovered/Not Resolved]
  - Dysphagia [Not Recovered/Not Resolved]
  - Balance disorder [Not Recovered/Not Resolved]
  - Ataxia [Not Recovered/Not Resolved]

NARRATIVE: CASE EVENT DATE: 2016
